FAERS Safety Report 5590476-9 (Version None)
Quarter: 2008Q1

REPORT INFORMATION
  Report Type: 
  Country: None (occurrence: None)
  Receive Date: 20080114
  Receipt Date: 20080110
  Transmission Date: 20080703
  Serious: No
  Sender: FDA-Public Use
  Company Number: US-BOEHRINGER INGELHEIM PHARMACEUTICALS, INC.-2007-BP-23425BP

PATIENT
  Age: 66 Year
  Sex: Male

DRUGS (2)
  1. MIRAPEX [Suspect]
     Indication: PARKINSON'S DISEASE
     Dates: start: 20061201, end: 20071017
  2. CDOPA/LDOPA [Concomitant]
     Dates: start: 20051201

REACTIONS (3)
  - ABNORMAL BEHAVIOUR [None]
  - HYPERSEXUALITY [None]
  - SPEECH DISORDER [None]
